FAERS Safety Report 7460084 (Version 2)
Quarter: 2012Q4

REPORT INFORMATION
  Report Type: 
  Country: US (occurrence: US)
  Receive Date: 20100708
  Receipt Date: 20121210
  Transmission Date: 20130627
  Serious: No
  Sender: FDA-Public Use
  Company Number: US-PFIZER INC-2006140923

PATIENT
  Age: 53 Year
  Sex: Female
  Weight: 63.49 kg

DRUGS (16)
  1. CHANTIX [Suspect]
     Indication: SMOKING CESSATION THERAPY
     Dosage: 0.5mg daily
     Route: 048
     Dates: start: 20061107, end: 20061113
  2. CHANTIX [Suspect]
     Dosage: 0.5 mg, UNK
     Route: 048
     Dates: start: 20121021
  3. HYDROCODONE [Concomitant]
     Indication: BACK PAIN
     Dosage: UNK
  4. NEURONTIN [Concomitant]
     Indication: BACK PAIN
     Dosage: 400 mg, daily
     Route: 048
  5. NEURONTIN [Concomitant]
     Indication: NECK PAIN
  6. LYRICA [Concomitant]
     Indication: BACK PAIN
     Dosage: 25 mg, 2x/day
     Route: 048
  7. LYRICA [Concomitant]
     Indication: NECK PAIN
  8. TRICOR [Concomitant]
     Indication: BLOOD CHOLESTEROL ABNORMAL
     Dosage: 145 mg, daily
     Route: 048
  9. CRESTOR [Concomitant]
     Indication: BLOOD CHOLESTEROL ABNORMAL
     Dosage: 5 mg, daily
     Route: 048
  10. NASONEX [Concomitant]
     Indication: RHINITIS ALLERGIC
     Dosage: 50mcg nasal spray 2sprays in each nostril, daily
     Route: 045
  11. DETROL LA [Concomitant]
     Indication: BLADDER DISORDER
     Dosage: 4 mg, daily
     Route: 048
  12. CYMBALTA [Concomitant]
     Indication: DEPRESSION
     Dosage: 60 mg, 2x/day
     Route: 048
  13. PATANASE [Concomitant]
     Indication: RHINITIS ALLERGIC
     Dosage: at 665mcg nasal spray 2sprays in each nostril daily
     Route: 045
  14. ABILIFY [Concomitant]
     Indication: DEPRESSION
     Dosage: 2 mg, daily
     Route: 048
  15. ULTRAM [Concomitant]
     Indication: BACK PAIN
     Dosage: 50 mg, UNK
     Route: 048
  16. ULTRAM [Concomitant]
     Indication: NECK PAIN

REACTIONS (3)
  - Nausea [Not Recovered/Not Resolved]
  - Vomiting [Recovered/Resolved]
  - Malaise [Unknown]
